FAERS Safety Report 5390068-0 (Version None)
Quarter: 2007Q3

REPORT INFORMATION
  Report Type: 
  Country: None (occurrence: None)
  Receive Date: 20070718
  Receipt Date: 20070718
  Transmission Date: 20080115
  Serious: Yes (Other)
  Sender: FDA-Public Use
  Company Number: A0664632A

PATIENT
  Sex: Female
  Weight: 50 kg

DRUGS (3)
  1. TUMS [Suspect]
     Route: 048
     Dates: start: 20070617
  2. ALEVE [Suspect]
     Dosage: 440MG PER DAY
     Route: 048
     Dates: start: 20070617
  3. FOSAMAX [Suspect]
     Indication: DRUG USE FOR UNKNOWN INDICATION
     Dates: end: 20070701

REACTIONS (3)
  - DRUG INEFFECTIVE [None]
  - RECTAL HAEMORRHAGE [None]
  - STOMACH DISCOMFORT [None]
